FAERS Safety Report 23407387 (Version 1)
Quarter: 2024Q1

REPORT INFORMATION
  Report Type: Spontaneous
  Country: BR (occurrence: None)
  Receive Date: 20240117
  Receipt Date: 20240117
  Transmission Date: 20240410
  Serious: Yes (Hospitalization, Other)
  Sender: FDA-Public Use
  Company Number: 2024A010475

PATIENT
  Sex: Male

DRUGS (2)
  1. LYNPARZA [Suspect]
     Active Substance: OLAPARIB
     Route: 048
     Dates: start: 20231209, end: 20231211
  2. TEMOZOLOMIDE [Concomitant]
     Active Substance: TEMOZOLOMIDE
     Dates: start: 20231209

REACTIONS (5)
  - Fatigue [Recovering/Resolving]
  - Somnolence [Recovering/Resolving]
  - Malaise [Recovering/Resolving]
  - Pyrexia [Recovering/Resolving]
  - Headache [Recovering/Resolving]
